FAERS Safety Report 8794106 (Version 3)
Quarter: 2012Q4

REPORT INFORMATION
  Report Type: 
  Country: US (occurrence: US)
  Receive Date: 20120917
  Receipt Date: 20121017
  Transmission Date: 20130627
  Serious: Yes (Other)
  Sender: FDA-Public Use
  Company Number: PHEH2012US017860

PATIENT
  Sex: Male

DRUGS (3)
  1. TRILEPTAL [Suspect]
  2. SABRIL [Suspect]
     Dosage: 0.5 DF 0.5 DF (Half pack), BID
     Route: 048
  3. SABRIL [Suspect]
     Dosage: 1 DF 0.5 DF (One pack), BID
     Route: 048
     Dates: start: 20120829

REACTIONS (1)
  - Convulsion [Recovered/Resolved]
